FAERS Safety Report 7983580-9 (Version None)
Quarter: 2011Q4

REPORT INFORMATION
  Report Type: 
  Country: None (occurrence: None)
  Receive Date: 20111215
  Receipt Date: 20111212
  Transmission Date: 20120403
  Serious: Yes (Other)
  Sender: FDA-Public Use
  Company Number: PHHY2011MX108667

PATIENT
  Age: 60 Year
  Sex: Female

DRUGS (3)
  1. ASPIRIN [Concomitant]
     Indication: THROMBOSIS PROPHYLAXIS
     Dosage: 1 DF, UNK
     Dates: start: 20110701
  2. EXFORGE HCT [Suspect]
     Indication: HYPERTENSION
     Dosage: 1 DF (320/10/25 MG), DAILY
     Dates: start: 20110701
  3. BEZAFIBRATE [Concomitant]
     Indication: BLOOD CHOLESTEROL
     Dosage: 2 DF, UNK
     Dates: start: 20110801

REACTIONS (1)
  - VIITH NERVE PARALYSIS [None]
